FAERS Safety Report 5408151-X (Version None)
Quarter: 2007Q3

REPORT INFORMATION
  Report Type: 
  Country: None (occurrence: None)
  Receive Date: 20070808
  Receipt Date: 20070730
  Transmission Date: 20080115
  Serious: Yes (Life-Threatening, Hospitalization, Other)
  Sender: FDA-Public Use
  Company Number: GB-JNJFOC-20070702561

PATIENT
  Age: 74 Year
  Sex: Female

DRUGS (3)
  1. DOXORUBICIN HCL [Suspect]
     Indication: DRUG USE FOR UNKNOWN INDICATION
     Route: 042
  2. DEXAMETHASONE 0.5MG TAB [Concomitant]
     Route: 042
  3. ONDANSETRON [Concomitant]
     Route: 042

REACTIONS (4)
  - DIZZINESS [None]
  - ERYTHEMA [None]
  - HYPOTENSION [None]
  - INFUSION RELATED REACTION [None]
